FAERS Safety Report 12664294 (Version 1)
Quarter: 2016Q3

REPORT INFORMATION
  Report Type: Spontaneous
  Country: CA (occurrence: CA)
  Receive Date: 20160818
  Receipt Date: 20160818
  Transmission Date: 20161109
  Serious: Yes (Hospitalization, Other)
  Sender: FDA-Public Use
  Company Number: CA-MYLANLABS-2016M1034677

PATIENT

DRUGS (1)
  1. ACICLOVIR [Suspect]
     Active Substance: ACYCLOVIR
     Indication: GENITAL HERPES
     Route: 064

REACTIONS (2)
  - Cyanosis neonatal [Recovered/Resolved]
  - Foetal exposure during pregnancy [Recovered/Resolved]
